FAERS Safety Report 7669424-3 (Version None)
Quarter: 2011Q3

REPORT INFORMATION
  Report Type: 
  Country: None (occurrence: None)
  Receive Date: 20110808
  Receipt Date: 20110729
  Transmission Date: 20111222
  Serious: Yes (Hospitalization)
  Sender: FDA-Public Use
  Company Number: US-B.I. PHARMACEUTICALS,INC./RIDGEFIELD-2011-BP-19191YA

PATIENT
  Age: 67 Year
  Sex: Male

DRUGS (2)
  1. TAMSULOSIN HCL [Suspect]
     Dosage: 1.2 MG
     Route: 048
  2. METOPROLOL TARTRATE [Concomitant]

REACTIONS (6)
  - HYPOTENSION [None]
  - TACHYCARDIA [None]
  - INAPPROPRIATE SCHEDULE OF DRUG ADMINISTRATION [None]
  - VISUAL IMPAIRMENT [None]
  - DIZZINESS [None]
  - ATRIAL FIBRILLATION [None]
